FAERS Safety Report 21908625 (Version 1)
Quarter: 2023Q1

REPORT INFORMATION
  Report Type: Spontaneous
  Country: US (occurrence: None)
  Receive Date: 20230124
  Receipt Date: 20230124
  Transmission Date: 20230418
  Serious: Yes (Life-Threatening)
  Sender: FDA-Public Use
  Company Number: None

PATIENT
  Age: 57 Year
  Sex: Female
  Weight: 103.05 kg

DRUGS (1)
  1. TRESIBA [Suspect]
     Active Substance: INSULIN DEGLUDEC
     Indication: Type 2 diabetes mellitus
     Dosage: OTHER QUANTITY : 80 UNITS PER DAY;?FREQUENCY : AT BEDTIME;?OTHER ROUTE : INJECTION INTO SKIN;?
     Route: 058
     Dates: end: 20230124

REACTIONS (4)
  - Eye swelling [None]
  - Swelling face [None]
  - Gait disturbance [None]
  - Dyspnoea [None]

NARRATIVE: CASE EVENT DATE: 20230119
